FAERS Safety Report 4705561-0 (Version None)
Quarter: 2005Q2

REPORT INFORMATION
  Report Type: 
  Country: None (occurrence: None)
  Receive Date: 20050629
  Receipt Date: 20041201
  Transmission Date: 20051028
  Serious: Yes (Other)
  Sender: FDA-Public Use
  Company Number: 200421829GDDC

PATIENT
  Age: 85 Year
  Sex: Female
  Weight: 44 kg

DRUGS (10)
  1. ENOXAPARIN SODIUM [Suspect]
     Dosage: 40 MG/DAY SC
     Route: 058
     Dates: start: 20041110, end: 20041118
  2. ENOXAPARIN SODIUM [Suspect]
     Dosage: QD SC
     Dates: start: 20041119, end: 20041127
  3. ASPIRIN [Suspect]
     Indication: ISCHAEMIA
     Dosage: 100 MG/DAY PO
     Route: 048
     Dates: start: 20040101
  4. ASPIRIN [Suspect]
     Indication: PROPHYLAXIS
     Dosage: 100 MG/DAY PO
     Route: 048
     Dates: start: 20040101
  5. CARVEDILOL [Suspect]
     Indication: TACHYCARDIA
     Dosage: 12.5 MG/DAY PO
     Route: 048
     Dates: start: 20040101
  6. METHYLPREDNISOLONE 16MG TAB [Concomitant]
  7. BUDESONIDE [Concomitant]
  8. COMBIVENT [Concomitant]
  9. XANAX [Concomitant]
  10. OXYGEN [Concomitant]

REACTIONS (7)
  - APHASIA [None]
  - ASTHENIA [None]
  - CEREBRAL INFARCTION [None]
  - DISORIENTATION [None]
  - DYSARTHRIA [None]
  - HEADACHE [None]
  - TRANSIENT ISCHAEMIC ATTACK [None]
